FAERS Safety Report 6676404-3 (Version None)
Quarter: 2010Q2

REPORT INFORMATION
  Report Type: 
  Country: None (occurrence: None)
  Receive Date: 20100408
  Receipt Date: 20100329
  Transmission Date: 20101027
  Serious: Yes (Other)
  Sender: FDA-Public Use
  Company Number: DSU-2008-00587

PATIENT
  Age: 55 Year
  Sex: Female
  Weight: 43.5453 kg

DRUGS (9)
  1. WELCHOL [Suspect]
     Indication: HYPERLIPIDAEMIA
     Dosage: 3750 MG (1875 MG, BID), PER ORAL; 3125 MG (3 TABLETS AT LUNCH AND 2 AT DINNER), PER ORAL
     Route: 048
     Dates: start: 20041201, end: 20070801
  2. WELCHOL [Suspect]
     Indication: HYPERLIPIDAEMIA
     Dosage: 3750 MG (1875 MG, BID), PER ORAL; 3125 MG (3 TABLETS AT LUNCH AND 2 AT DINNER), PER ORAL
     Route: 048
     Dates: start: 20070801
  3. URSODIOL (URSODEOXYCHOLIC ACID) (TABLET) (URSODEOXYCHOLIC ACID) [Suspect]
     Indication: BILIARY CIRRHOSIS PRIMARY
     Dosage: PER ORAL
     Route: 048
     Dates: start: 20050301
  4. RHINOCORT (BUDESONIDE) (NASAL SPRAY) (BUDESONIDE) [Concomitant]
  5. SEREVENT (SALMETEROL XINAFOATE)    (SALMETEROL XINAFOATE) [Concomitant]
  6. FOSAMAX (ALENDRONATE SODIUM) (ALENDRONATE SODIUM) [Concomitant]
  7. ACTONEL (RISEDRONATE SODIUM) (RISEDRONATE SODIUM) [Concomitant]
  8. MULTIVITAMIN [Concomitant]
  9. CALCIUM PLUS VITAMIN D (COLECALCIFEROL, CALCIUM CARBONATE) (COLECALCIF [Concomitant]

REACTIONS (4)
  - BILIARY CIRRHOSIS PRIMARY [None]
  - BONE DENSITY DECREASED [None]
  - DRUG INTERACTION [None]
  - WEIGHT DECREASED [None]
